FAERS Safety Report 15738295 (Version 3)
Quarter: 2019Q1

REPORT INFORMATION
  Report Type: Report from Study
  Country: JP (occurrence: JP)
  Receive Date: 20181219
  Receipt Date: 20190304
  Transmission Date: 20190417
  Serious: Yes (Hospitalization, Other)
  Sender: FDA-Public Use
  Company Number: JP-AMGEN-JPNNI2018179066

PATIENT
  Age: 64 Year
  Sex: Male
  Weight: 68.5 kg

DRUGS (6)
  1. PRECIPITATED CALCIUM CARBONATE [Concomitant]
     Active Substance: CALCIUM CARBONATE
     Dosage: 500 MG, UNK (500 MG)
     Route: 048
     Dates: start: 20180823, end: 20180919
  2. PRECIPITATED CALCIUM CARBONATE [Concomitant]
     Active Substance: CALCIUM CARBONATE
     Dosage: 1000 MG, UNK (1000 MG)
     Route: 048
     Dates: start: 20180809, end: 20180822
  3. OXAROL [Concomitant]
     Active Substance: MAXACALCITOL
     Dosage: 7.5 MUG, UNK (7.5 UG)
     Route: 065
  4. ETELCALCETIDE [Suspect]
     Active Substance: ETELCALCETIDE
     Indication: HYPERPARATHYROIDISM SECONDARY
     Dosage: 2.5 MG, 3 TIMES/WK (2.5 MG, Q56H)
     Route: 010
     Dates: start: 20171201, end: 20180829
  5. OXAROL [Concomitant]
     Active Substance: MAXACALCITOL
     Dosage: 5 MUG, UNK (5 UG)
     Route: 065
     Dates: start: 20180228
  6. PRECIPITATED CALCIUM CARBONATE [Concomitant]
     Active Substance: CALCIUM CARBONATE
     Dosage: 1000 MG, UNK (1000 MG)
     Route: 048

REACTIONS (4)
  - Infectious pleural effusion [Recovered/Resolved]
  - Facial paralysis [Recovered/Resolved]
  - Gastrooesophageal reflux disease [Recovering/Resolving]
  - Nasopharyngitis [Recovered/Resolved]

NARRATIVE: CASE EVENT DATE: 20180525
